FAERS Safety Report 9672309 (Version 2)
Quarter: 2013Q4

REPORT INFORMATION
  Report Type: Spontaneous
  Country: CA (occurrence: None)
  Receive Date: 20131105
  Receipt Date: 20131122
  Transmission Date: 20140711
  Serious: Yes (Life-Threatening)
  Sender: FDA-Public Use
  Company Number: ENTC2013-0411

PATIENT
  Age: 90 Year
  Sex: Female

DRUGS (1)
  1. STAVELO (LEVODOPA, CARBIDOPA, ENTACAPONE) [Suspect]

REACTIONS (4)
  - Apparent death [None]
  - Choking [None]
  - Fear of death [None]
  - Reflexes abnormal [None]
